FAERS Safety Report 10181905 (Version 1)
Quarter: 2014Q2

REPORT INFORMATION
  Report Type: Spontaneous
  Country: US (occurrence: US)
  Receive Date: 20140519
  Receipt Date: 20140519
  Transmission Date: 20141212
  Serious: Yes (Other)
  Sender: FDA-Public Use
  Company Number: US-SA-2014SA021966

PATIENT
  Sex: Female

DRUGS (1)
  1. AUVI-Q [Suspect]
     Indication: RESPIRATORY DISORDER
     Route: 065

REACTIONS (1)
  - Anaphylactic reaction [Recovered/Resolved]
